FAERS Safety Report 6768488-9 (Version None)
Quarter: 2010Q2

REPORT INFORMATION
  Report Type: 
  Country: None (occurrence: None)
  Receive Date: 20100614
  Receipt Date: 20100604
  Transmission Date: 20101027
  Serious: Yes (Hospitalization, Disabling, Other)
  Sender: FDA-Public Use
  Company Number: US-ABBOTT-10P-163-0644334-00

PATIENT
  Sex: Male
  Weight: 81.72 kg

DRUGS (12)
  1. TRILIPIX [Suspect]
     Indication: BLOOD CHOLESTEROL INCREASED
     Route: 048
     Dates: start: 20100401, end: 20100511
  2. TRILIPIX [Suspect]
     Route: 048
     Dates: start: 20100514, end: 20100604
  3. PLAVIX [Concomitant]
     Indication: STENT PLACEMENT
     Route: 048
     Dates: start: 20070101, end: 20100511
  4. PLAVIX [Concomitant]
     Route: 048
     Dates: start: 20100514
  5. METOPROLOL TARTRATE [Concomitant]
     Indication: CARDIAC DISORDER
     Route: 048
     Dates: end: 20100511
  6. PROZAC [Concomitant]
     Indication: DEPRESSION
     Route: 048
     Dates: end: 20100511
  7. PROZAC [Concomitant]
     Route: 048
     Dates: start: 20100514
  8. TRAZODONE HYDROCHLORIDE [Concomitant]
     Indication: INSOMNIA
     Route: 048
     Dates: end: 20100511
  9. TRAZODONE HYDROCHLORIDE [Concomitant]
     Dates: start: 20100514
  10. ACETAMINOPHEN AND HYDROCODONE BITARTRATE [Concomitant]
     Indication: BACK PAIN
     Route: 048
  11. WARFARIN [Concomitant]
     Indication: ANTICOAGULANT THERAPY
     Route: 048
     Dates: end: 20100511
  12. WARFARIN [Concomitant]
     Indication: STENT PLACEMENT

REACTIONS (10)
  - ASTHENIA [None]
  - CARDIAC DISORDER [None]
  - CHEST PAIN [None]
  - DYSPNOEA [None]
  - FAECES DISCOLOURED [None]
  - GASTROINTESTINAL HAEMORRHAGE [None]
  - LOSS OF CONSCIOUSNESS [None]
  - MYOCARDIAL INFARCTION [None]
  - PAIN IN JAW [None]
  - PARAESTHESIA [None]
